FAERS Safety Report 9825970 (Version 1)
Quarter: 2014Q1

REPORT INFORMATION
  Report Type: Spontaneous
  Country: FR (occurrence: None)
  Receive Date: 20140115
  Receipt Date: 20140115
  Transmission Date: 20141002
  Serious: Yes (Death)
  Sender: FDA-Public Use
  Company Number: 2113016

PATIENT
  Age: 57 Year
  Sex: Female

DRUGS (7)
  1. VINCRISTINE SULFATE [Suspect]
     Indication: CHEMOTHERAPY
     Route: 042
     Dates: start: 20100305, end: 20100305
  2. CYTARABINE [Suspect]
     Indication: CHEMOTHERAPY
     Route: 042
     Dates: start: 20100305, end: 20100305
  3. METHOTREXATE SANDOZ [Suspect]
     Indication: CHEMOTHERAPY
     Route: 042
     Dates: start: 20100305, end: 20100305
  4. CERUBIDINE [Suspect]
     Indication: CHEMOTHERAPY
     Route: 042
     Dates: start: 20100305, end: 20100308
  5. CYCLOPHOSPHAMIDE [Suspect]
     Indication: CHEMOTHERAPY
     Route: 042
     Dates: start: 20100305, end: 20100305
  6. ASPARAGINASE [Concomitant]
  7. METHYLPREDNISOLONE MERCK [Concomitant]

REACTIONS (3)
  - Renal failure [None]
  - Hepatic failure [None]
  - Hepatic encephalopathy [None]
